FAERS Safety Report 4269175-1 (Version None)
Quarter: 2004Q1

REPORT INFORMATION
  Report Type: 
  Country: None (occurrence: None)
  Receive Date: 20040108
  Receipt Date: 20031227
  Transmission Date: 20041129
  Serious: Yes (Hospitalization)
  Sender: FDA-Public Use
  Company Number: 03P-062-0245925-00

PATIENT
  Age: 42 Year
  Sex: Female
  Weight: 58 kg

DRUGS (1)
  1. ISOPTIN [Suspect]
     Indication: SUICIDE ATTEMPT
     Dosage: 3600 MG, ONCE, PER ORAL
     Route: 048
     Dates: start: 20031226, end: 20031226

REACTIONS (6)
  - ACIDOSIS [None]
  - DIARRHOEA [None]
  - HYPOTENSION [None]
  - INTENTIONAL OVERDOSE [None]
  - SUICIDE ATTEMPT [None]
  - VOMITING [None]
